FAERS Safety Report 11523815 (Version 1)
Quarter: 2015Q3

REPORT INFORMATION
  Report Type: Spontaneous
  Country: US (occurrence: US)
  Receive Date: 20150903
  Receipt Date: 20150903
  Transmission Date: 20151125
  Serious: No
  Sender: FDA-Public Use
  Company Number: US-ELI_LILLY_AND_COMPANY-US201304003433

PATIENT
  Age: 70 Year

DRUGS (1)
  1. CYMBALTA [Suspect]
     Active Substance: DULOXETINE HYDROCHLORIDE
     Indication: NERVE INJURY
     Dosage: 60 MG, UNK

REACTIONS (4)
  - Hair texture abnormal [Unknown]
  - Pruritus [Unknown]
  - Off label use [Unknown]
  - Alopecia [Unknown]
